FAERS Safety Report 8492124-7 (Version None)
Quarter: 2012Q3

REPORT INFORMATION
  Report Type: 
  Country: None (occurrence: None)
  Receive Date: 20120706
  Receipt Date: 20120628
  Transmission Date: 20120928
  Serious: Yes (Hospitalization)
  Sender: FDA-Public Use
  Company Number: NZ-SANOFI-AVENTIS-2011SA081917

PATIENT
  Age: 55 Year
  Sex: Female
  Weight: 96 kg

DRUGS (4)
  1. DOCETAXEL [Suspect]
     Route: 042
     Dates: start: 20110302
  2. TRASTUZUMAB [Suspect]
     Dosage: LOADING DOSE
     Route: 042
     Dates: start: 20110302, end: 20110302
  3. TRASTUZUMAB [Suspect]
     Dosage: MAINTENANCE DOSE
     Route: 042
  4. DOCETAXEL [Suspect]
     Route: 042
     Dates: start: 20110302

REACTIONS (5)
  - DYSAESTHESIA [None]
  - LARGE INTESTINE PERFORATION [None]
  - DIVERTICULUM [None]
  - CONSTIPATION [None]
  - ABDOMINAL PAIN [None]
